FAERS Safety Report 21488410 (Version 1)
Quarter: 2022Q4

REPORT INFORMATION
  Report Type: Spontaneous
  Country: US (occurrence: US)
  Receive Date: 20221021
  Receipt Date: 20221021
  Transmission Date: 20230112
  Serious: Yes (Hospitalization, Other)
  Sender: FDA-Public Use
  Company Number: US-SUN PHARMACEUTICAL INDUSTRIES LTD-2022R1-360314

PATIENT
  Age: 72 Year
  Sex: Male

DRUGS (4)
  1. DEXAMETHASONE [Suspect]
     Active Substance: DEXAMETHASONE
     Indication: COVID-19
     Dosage: 6 MILLIGRAM, DAILY
     Route: 048
  2. BAMLANIVIMAB [Concomitant]
     Active Substance: BAMLANIVIMAB
     Dosage: UNK (7 MG/KG)
     Route: 042
  3. BAMLANIVIMAB [Concomitant]
     Active Substance: BAMLANIVIMAB
     Indication: COVID-19
  4. BAMLANIVIMAB [Concomitant]
     Active Substance: BAMLANIVIMAB

REACTIONS (1)
  - Condition aggravated [Unknown]
